FAERS Safety Report 8214965-3 (Version None)
Quarter: 2012Q1

REPORT INFORMATION
  Report Type: 
  Country: None (occurrence: None)
  Receive Date: 20120316
  Receipt Date: 20120309
  Transmission Date: 20120608
  Serious: Yes (Other)
  Sender: FDA-Public Use
  Company Number: DE-JNJFOC-20120305916

PATIENT
  Age: 44 Year
  Sex: Female

DRUGS (1)
  1. XEPLION [Suspect]
     Indication: PRODUCT USED FOR UNKNOWN INDICATION
     Route: 030
     Dates: start: 20111114, end: 20120305

REACTIONS (5)
  - TONGUE SPASM [None]
  - LARYNGOSPASM [None]
  - EXTRAPYRAMIDAL DISORDER [None]
  - OCULOGYRIC CRISIS [None]
  - BLOOD PRESSURE INCREASED [None]
